FAERS Safety Report 15130067 (Version 6)
Quarter: 2018Q3

REPORT INFORMATION
  Report Type: Report from Study
  Country: US (occurrence: US)
  Receive Date: 20180711
  Receipt Date: 20180809
  Transmission Date: 20181010
  Serious: Yes (Hospitalization, Other)
  Sender: FDA-Public Use
  Company Number: US-GILEAD-2018-0331524

PATIENT
  Age: 47 Year
  Sex: Female

DRUGS (4)
  1. ADCIRCA [Concomitant]
     Active Substance: TADALAFIL
  2. AMBRISENTAN [Suspect]
     Active Substance: AMBRISENTAN
     Indication: PRODUCT USED FOR UNKNOWN INDICATION
     Dosage: 10 MG, QD
     Route: 065
     Dates: start: 20141114
  3. ADEMPAS [Concomitant]
     Active Substance: RIOCIGUAT
  4. WARFARIN [Concomitant]
     Active Substance: WARFARIN

REACTIONS (15)
  - Erythema [Recovering/Resolving]
  - Dizziness [Recovering/Resolving]
  - Dyspnoea [Not Recovered/Not Resolved]
  - Heart rate increased [Recovering/Resolving]
  - Peripheral swelling [Not Recovered/Not Resolved]
  - Generalised oedema [Unknown]
  - Gout [Unknown]
  - Diarrhoea [Recovering/Resolving]
  - Pyrexia [Recovering/Resolving]
  - Pulmonary hypertension [Unknown]
  - Constipation [Recovering/Resolving]
  - Hypertension [Not Recovered/Not Resolved]
  - Blood pressure diastolic decreased [Recovering/Resolving]
  - Blood pressure increased [Unknown]
  - Fluid retention [Unknown]
